FAERS Safety Report 4340766-2 (Version None)
Quarter: 2004Q2

REPORT INFORMATION
  Report Type: 
  Country: None (occurrence: None)
  Receive Date: 20040419
  Receipt Date: 20040407
  Transmission Date: 20050107
  Serious: Yes (Hospitalization)
  Sender: FDA-Public Use
  Company Number: 200411472FR

PATIENT
  Age: 65 Year
  Sex: Male
  Weight: 104 kg

DRUGS (9)
  1. DOCETAXEL [Suspect]
     Indication: OROPHARYNGEAL CANCER STAGE UNSPECIFIED
     Route: 042
     Dates: start: 20031210
  2. RADIOTHERAPY [Concomitant]
     Indication: OROPHARYNGEAL CANCER STAGE UNSPECIFIED
     Dates: start: 20031210
  3. CISPLATIN [Suspect]
     Indication: OROPHARYNGEAL CANCER STAGE UNSPECIFIED
     Route: 042
     Dates: start: 20031210
  4. SOLU-MEDROL [Suspect]
     Indication: PREMEDICATION
     Route: 048
     Dates: start: 20040113, end: 20040116
  5. LANTUS [Suspect]
     Indication: DIABETES MELLITUS
     Route: 058
     Dates: start: 20040101
  6. DAONIL [Concomitant]
     Indication: DIABETES MELLITUS
     Route: 048
     Dates: start: 20031210
  7. PLAVIX [Concomitant]
     Indication: ARTERITIS
     Route: 048
     Dates: start: 20031211
  8. LAMALINE [Concomitant]
     Indication: PHARYNGOLARYNGEAL PAIN
     Dates: start: 20040101
  9. ATACAND                                 /SWE/ [Concomitant]
     Indication: HYPERTENSION
     Route: 048

REACTIONS (2)
  - CONDITION AGGRAVATED [None]
  - DIABETES MELLITUS [None]
